FAERS Safety Report 14862692 (Version 4)
Quarter: 2018Q3

REPORT INFORMATION
  Report Type: Not Available
  Country: US (occurrence: US)
  Receive Date: 20180508
  Receipt Date: 20180925
  Transmission Date: 20181010
  Serious: Yes (Hospitalization)
  Sender: FDA-Public Use
  Company Number: US-NEUROCRINE BIOSCIENCES INC.-2018NBI01313

PATIENT
  Sex: Male

DRUGS (15)
  1. CLONIDINE. [Concomitant]
     Active Substance: CLONIDINE
  2. INGREZZA [Suspect]
     Active Substance: VALBENAZINE
     Indication: TARDIVE DYSKINESIA
     Route: 048
     Dates: start: 201804, end: 201804
  3. INGREZZA [Suspect]
     Active Substance: VALBENAZINE
     Route: 048
     Dates: start: 201804
  4. ASPIRIN. [Concomitant]
     Active Substance: ASPIRIN
  5. FENOFIBRATE. [Concomitant]
     Active Substance: FENOFIBRATE
  6. FOLIC ACID. [Concomitant]
     Active Substance: FOLIC ACID
  7. METOPROLOL. [Concomitant]
     Active Substance: METOPROLOL
  8. LITHIUM. [Concomitant]
     Active Substance: LITHIUM
  9. LEXAPRO [Concomitant]
     Active Substance: ESCITALOPRAM OXALATE
     Indication: BIPOLAR DISORDER
     Dosage: 10
     Route: 048
  10. ISOSORBIDE. [Concomitant]
     Active Substance: ISOSORBIDE
  11. TRILEPTAL [Concomitant]
     Active Substance: OXCARBAZEPINE
  12. CATAPRES [Concomitant]
     Active Substance: CLONIDINE HYDROCHLORIDE
     Dosage: 0.2
     Route: 048
  13. AMLODIPINE [Concomitant]
     Active Substance: AMLODIPINE BESYLATE
  14. INSULIN [Concomitant]
     Active Substance: INSULIN NOS
     Indication: DIABETES MELLITUS
  15. TRILEPTAL [Concomitant]
     Active Substance: OXCARBAZEPINE
     Indication: BIPOLAR DISORDER

REACTIONS (5)
  - Asthenia [Not Recovered/Not Resolved]
  - Malaise [Unknown]
  - Lethargy [Not Recovered/Not Resolved]
  - Renal disorder [Recovering/Resolving]
  - Dyskinesia [Unknown]

NARRATIVE: CASE EVENT DATE: 2018
